FAERS Safety Report 12637818 (Version 2)
Quarter: 2016Q3

REPORT INFORMATION
  Report Type: Report from Study
  Country: PH (occurrence: PH)
  Receive Date: 20160809
  Receipt Date: 20160831
  Transmission Date: 20161109
  Serious: Yes (Death, Hospitalization, Other)
  Sender: FDA-Public Use
  Company Number: PH-009507513-1608PHL004180

PATIENT
  Age: 68 Year
  Sex: Male

DRUGS (1)
  1. JANUVIA [Suspect]
     Active Substance: SITAGLIPTIN PHOSPHATE
     Dosage: 50 MG, QD
     Route: 048

REACTIONS (5)
  - Surgery [Unknown]
  - Abnormal faeces [Unknown]
  - Death [Fatal]
  - Inappropriate schedule of drug administration [Unknown]
  - Colon cancer [Unknown]

NARRATIVE: CASE EVENT DATE: 20160607
